FAERS Safety Report 12681311 (Version 7)
Quarter: 2016Q4

REPORT INFORMATION
  Report Type: Spontaneous
  Country: CA (occurrence: CA)
  Receive Date: 20160824
  Receipt Date: 20161213
  Transmission Date: 20170207
  Serious: Yes (Other)
  Sender: FDA-Public Use
  Company Number: CA-PFIZER INC-2016291457

PATIENT
  Age: 45 Year
  Sex: Female

DRUGS (8)
  1. XELJANZ [Suspect]
     Active Substance: TOFACITINIB CITRATE
     Indication: RHEUMATOID ARTHRITIS
     Dosage: 5 MG, 2X/DAY
     Route: 048
     Dates: start: 20160603, end: 20160621
  2. XELJANZ [Suspect]
     Active Substance: TOFACITINIB CITRATE
     Dosage: 5 MG, 2X/DAY
     Route: 048
     Dates: start: 20161002, end: 20161026
  3. PREDNISONE. [Concomitant]
     Active Substance: PREDNISONE
     Dosage: 20 MG, DAILY
     Dates: start: 20160817
  4. PREDNISONE. [Concomitant]
     Active Substance: PREDNISONE
     Dosage: 25 MG, DAILY
     Dates: end: 2016
  5. PREDNISONE. [Concomitant]
     Active Substance: PREDNISONE
     Dosage: 30 MG, DAILY
  6. XELJANZ [Suspect]
     Active Substance: TOFACITINIB CITRATE
     Dosage: 5 MG, 2X/DAY
     Route: 048
     Dates: start: 20160719, end: 20160922
  7. XELJANZ [Suspect]
     Active Substance: TOFACITINIB CITRATE
     Dosage: 5 MG, 2X/DAY
     Route: 048
     Dates: start: 20161102, end: 20161104
  8. RISEDRONATE [Concomitant]
     Active Substance: RISEDRONATE SODIUM
     Indication: OSTEOPOROSIS
     Dosage: 35 MG, WEEKLY
     Route: 048

REACTIONS (25)
  - Spinal compression fracture [Not Recovered/Not Resolved]
  - Stomatitis [Unknown]
  - Blood urine present [Unknown]
  - Back pain [Recovered/Resolved]
  - Synovial cyst [Unknown]
  - Blood urine present [Unknown]
  - Arthralgia [Recovered/Resolved]
  - Pollakiuria [Unknown]
  - Joint swelling [Recovering/Resolving]
  - Condition aggravated [Not Recovered/Not Resolved]
  - Musculoskeletal pain [Recovered/Resolved]
  - Dyspnoea [Not Recovered/Not Resolved]
  - Sinusitis [Not Recovered/Not Resolved]
  - Weight decreased [Unknown]
  - Decreased appetite [Not Recovered/Not Resolved]
  - Drug effect incomplete [Not Recovered/Not Resolved]
  - Pain [Not Recovered/Not Resolved]
  - Fatigue [Recovering/Resolving]
  - Chest pain [Not Recovered/Not Resolved]
  - Contusion [Unknown]
  - Headache [Recovering/Resolving]
  - Insomnia [Unknown]
  - Abdominal pain [Recovering/Resolving]
  - Peripheral swelling [Unknown]
  - Abdominal distension [Unknown]

NARRATIVE: CASE EVENT DATE: 2016
